FAERS Safety Report 12605832 (Version 1)
Quarter: 2016Q3

REPORT INFORMATION
  Report Type: Report from Study
  Country: BR (occurrence: BR)
  Receive Date: 20160729
  Receipt Date: 20160729
  Transmission Date: 20161109
  Serious: Yes (Death, Other)
  Sender: FDA-Public Use
  Company Number: PHHY2016BR103959

PATIENT
  Age: 88 Year
  Sex: Female

DRUGS (2)
  1. ONBREZ BREEZHALER [Suspect]
     Active Substance: INDACATEROL
     Indication: CHRONIC OBSTRUCTIVE PULMONARY DISEASE
     Dosage: 150 UG, UNK
     Route: 065
  2. ENABLEX [Suspect]
     Active Substance: DARIFENACIN HYDROBROMIDE
     Indication: PRODUCT USED FOR UNKNOWN INDICATION
     Dosage: 28 DF (28 TABLETS), UNK
     Route: 065

REACTIONS (4)
  - Dementia Alzheimer^s type [Unknown]
  - Pneumonia [Fatal]
  - Underweight [Unknown]
  - Memory impairment [Unknown]

NARRATIVE: CASE EVENT DATE: 20150922
